FAERS Safety Report 4705209-5 (Version None)
Quarter: 2005Q2

REPORT INFORMATION
  Report Type: 
  Country: None (occurrence: None)
  Receive Date: 20050628
  Receipt Date: 20050614
  Transmission Date: 20051028
  Serious: Yes (Death, Life-Threatening, Other)
  Sender: FDA-Public Use
  Company Number: WAES 0506DEU00136

PATIENT
  Age: 32 Year
  Sex: Male

DRUGS (35)
  1. CANCIDAS [Suspect]
     Dates: start: 20040802
  2. AMPHOTERICIN B FOR INJECTION [Suspect]
     Indication: FUNGAL INFECTION
     Dosage: 3 MG/KG,IV
     Route: 042
     Dates: start: 20040727, end: 20040730
  3. ACETAMINOPHEN [Concomitant]
  4. ALLOPURINOL [Concomitant]
  5. CYTARABINE [Concomitant]
  6. DIHYDROCODEINE [Concomitant]
  7. DIMENHYDRINATE [Concomitant]
  8. DOPAMINE HCL [Concomitant]
  9. ETOMIDATE [Concomitant]
  10. FENTANYL [Concomitant]
  11. FILGRASTIM [Concomitant]
  12. FLUNITRAZEPAM [Concomitant]
  13. FUROSEMIDE [Concomitant]
  14. GRANISETRON [Concomitant]
  15. HYDROCHLOROTHIAZIDE [Concomitant]
  16. LEVOFLOXACIN [Concomitant]
  17. LOPERAMIDE HCL [Concomitant]
  18. MEPERIDINE HCL [Concomitant]
  19. METOCLOPRAMIDE [Concomitant]
  20. METRONIDAZOLE [Concomitant]
  21. MIDAZOLAM HCL [Concomitant]
  22. NOREPINEPHRINE HYDROCHLORIDE [Concomitant]
  23. ONDANSETRON [Concomitant]
  24. PENTAMIDINE ISETHIONATE [Concomitant]
  25. PHYTONADIONE [Concomitant]
  26. SPIRONOLACTONE [Concomitant]
  27. SUFENTANIL [Concomitant]
  28. SULFAMETHOXAZOLE [Concomitant]
  29. TAZOBACTAM [Concomitant]
  30. THIOGUANINE [Concomitant]
  31. TRIMETHOPRIM [Concomitant]
  32. VANCOMYCIN [Concomitant]
  33. VORICONAZOLE [Concomitant]
  34. XIPAMIDE [Concomitant]
  35. ZOPICLONE [Concomitant]

REACTIONS (5)
  - ACUTE RESPIRATORY FAILURE [None]
  - ALANINE AMINOTRANSFERASE INCREASED [None]
  - ASPARTATE AMINOTRANSFERASE INCREASED [None]
  - GAMMA-GLUTAMYLTRANSFERASE INCREASED [None]
  - PNEUMONIA [None]
